FAERS Safety Report 15120823 (Version 2)
Quarter: 2019Q2

REPORT INFORMATION
  Report Type: Spontaneous
  Country: US (occurrence: US)
  Receive Date: 20180709
  Receipt Date: 20190429
  Transmission Date: 20190711
  Serious: Yes (Other)
  Sender: FDA-Public Use
  Company Number: US-SA-2018SA157499

PATIENT
  Age: 81 Year
  Sex: Male

DRUGS (2)
  1. TOUJEO [Suspect]
     Active Substance: INSULIN GLARGINE
     Dosage: UNK
  2. EYLEA [Concomitant]
     Active Substance: AFLIBERCEPT
     Route: 065

REACTIONS (4)
  - Incorrect dose administered by device [Unknown]
  - Visual impairment [Unknown]
  - Diabetic retinopathy [Unknown]
  - Device issue [Unknown]
